FAERS Safety Report 4389417-1 (Version None)
Quarter: 2004Q3

REPORT INFORMATION
  Report Type: 
  Country: None (occurrence: None)
  Receive Date: 20040702
  Receipt Date: 20040623
  Transmission Date: 20050211
  Serious: Yes (Hospitalization)
  Sender: FDA-Public Use
  Company Number: PHBS2004IL08372

PATIENT
  Age: 78 Year
  Sex: Female

DRUGS (10)
  1. DIOVAN [Suspect]
     Indication: HYPERTENSION
     Dosage: 160 MG, QD
     Route: 048
     Dates: start: 20040519, end: 20040619
  2. GLUCOPHAGE [Concomitant]
  3. ALDACTONE [Concomitant]
     Dosage: 12.5 MG, QOD
  4. FUROSEMIDE [Concomitant]
     Dosage: 40 MG, UNK
  5. GLIBEN [Concomitant]
  6. NORMITEN [Concomitant]
     Dosage: 25 MG, UNK
  7. THYROID TAB [Concomitant]
     Dosage: 100 MG, UNK
  8. PREDNISONE [Concomitant]
     Dosage: 5 MG, UNK
  9. COUMADIN [Concomitant]
  10. METFORMIN [Concomitant]
     Dosage: 850 MG X2

REACTIONS (5)
  - ASTHENIA [None]
  - BLOOD CREATININE INCREASED [None]
  - HYPERKALAEMIA [None]
  - PAIN [None]
  - PAIN IN EXTREMITY [None]
